FAERS Safety Report 8530814-8 (Version None)
Quarter: 2012Q3

REPORT INFORMATION
  Report Type: 
  Country: None (occurrence: None)
  Receive Date: 20120723
  Receipt Date: 20120718
  Transmission Date: 20120928
  Serious: Yes (Hospitalization, Other)
  Sender: FDA-Public Use
  Company Number: US-PFIZER INC-2012173913

PATIENT
  Sex: Male
  Weight: 119 kg

DRUGS (10)
  1. FISH OIL [Suspect]
     Indication: BLOOD TRIGLYCERIDES INCREASED
  2. NIACIN [Suspect]
     Indication: BLOOD CHOLESTEROL INCREASED
     Dosage: UNK
  3. LIPITOR [Suspect]
     Indication: BLOOD CHOLESTEROL INCREASED
     Dosage: 40 MG, DAILY
     Dates: start: 19970901, end: 20090201
  4. GEMFIBROZIL [Suspect]
     Indication: BLOOD CHOLESTEROL INCREASED
     Dosage: 600 MG TWO TIMES A DAY
  5. GEMFIBROZIL [Suspect]
     Indication: BLOOD TRIGLYCERIDES INCREASED
  6. FISH OIL [Suspect]
     Indication: BLOOD CHOLESTEROL INCREASED
     Dosage: 4000 IU, UNK
  7. LIPITOR [Suspect]
     Indication: BLOOD TRIGLYCERIDES INCREASED
  8. LOVASTATIN [Suspect]
     Indication: BLOOD CHOLESTEROL INCREASED
     Dosage: 40 MG, DAILY
     Dates: start: 20090101
  9. LOVASTATIN [Suspect]
     Indication: BLOOD TRIGLYCERIDES INCREASED
  10. NIACIN [Suspect]
     Indication: BLOOD TRIGLYCERIDES INCREASED

REACTIONS (6)
  - BLOOD TRIGLYCERIDES ABNORMAL [None]
  - ARTHROPATHY [None]
  - ARTERIOSCLEROSIS CORONARY ARTERY [None]
  - MYOCARDIAL INFARCTION [None]
  - MENISCUS LESION [None]
  - ARRHYTHMIA [None]
